FAERS Safety Report 9027967 (Version 1)
Quarter: 2013Q1

REPORT INFORMATION
  Report Type: Spontaneous
  Country: US (occurrence: None)
  Receive Date: 20130114
  Receipt Date: 20130114
  Transmission Date: 20140127
  Serious: Yes (Hospitalization)
  Sender: FDA-Public Use
  Company Number: None

PATIENT
  Age: 75 Year
  Sex: Female
  Weight: 62.14 kg

DRUGS (1)
  1. ZOLPIDEM 10MG TEVA [Suspect]
     Indication: INSOMNIA
     Dosage: 1 TABLET AT BEDTIME AS NEED PO
     Dates: start: 20130102, end: 20130102

REACTIONS (4)
  - Loss of consciousness [None]
  - Fall [None]
  - Rib fracture [None]
  - Injury [None]
